FAERS Safety Report 7338372-0 (Version None)
Quarter: 2011Q1

REPORT INFORMATION
  Report Type: 
  Country: None (occurrence: None)
  Receive Date: 20110308
  Receipt Date: 20110302
  Transmission Date: 20110831
  Serious: Yes (Hospitalization, Other)
  Sender: FDA-Public Use
  Company Number: FR-GENZYME-CLOF-1001469

PATIENT

DRUGS (3)
  1. CYTARABINE [Suspect]
     Indication: ACUTE LYMPHOCYTIC LEUKAEMIA
     Dosage: 20 MG/M2, QDX7 DAYS
     Route: 058
  2. EVOLTRA [Suspect]
     Indication: ACUTE LYMPHOCYTIC LEUKAEMIA
     Dosage: 40 MG/M2, QDX5
     Route: 042
  3. GAMBROSOL [Concomitant]
     Indication: DIALYSIS
     Dosage: 55 ML/KG/HR USED AS DIALYSATE AND REPLACEMENT FLUID FROM DAY 1 TO 5
     Route: 010

REACTIONS (6)
  - COLITIS [None]
  - TRANSAMINASES INCREASED [None]
  - PALMAR-PLANTAR ERYTHRODYSAESTHESIA SYNDROME [None]
  - STOMATITIS [None]
  - PANCYTOPENIA [None]
  - OFF LABEL USE [None]
